FAERS Safety Report 16326495 (Version 1)
Quarter: 2019Q2

REPORT INFORMATION
  Report Type: Spontaneous
  Country: US (occurrence: US)
  Receive Date: 20190517
  Receipt Date: 20190517
  Transmission Date: 20190711
  Serious: Yes (Life-Threatening)
  Sender: FDA-Public Use
  Company Number: US-ALLERGAN-1919860US

PATIENT

DRUGS (1)
  1. KYBELLA [Suspect]
     Active Substance: DEOXYCHOLIC ACID
     Indication: PRODUCT USED FOR UNKNOWN INDICATION
     Dosage: 2 VIALS
     Dates: start: 201901

REACTIONS (9)
  - Dizziness [Unknown]
  - Speech disorder [Unknown]
  - Nuchal rigidity [Unknown]
  - Dyspnoea [Unknown]
  - Injection site atrophy [Unknown]
  - Cerebrovascular accident [Unknown]
  - Vision blurred [Unknown]
  - Neck pain [Unknown]
  - Incorrect route of product administration [Unknown]

NARRATIVE: CASE EVENT DATE: 201901
